FAERS Safety Report 5793074-7 (Version None)
Quarter: 2008Q2

REPORT INFORMATION
  Report Type: 
  Country: None (occurrence: None)
  Receive Date: 20080626
  Receipt Date: 20080626
  Transmission Date: 20081010
  Serious: Yes (Hospitalization, Disabling)
  Sender: FDA-Public Use
  Company Number: None

PATIENT
  Age: 3 Year
  Sex: Male
  Weight: 16 kg

DRUGS (1)
  1. TRETINOIN [Suspect]
     Indication: ACUTE PROMYELOCYTIC LEUKAEMIA
     Dosage: 10 MG QAM  PO;  20 MG QPM PO
     Route: 048
     Dates: start: 20080607

REACTIONS (8)
  - DRUG INTOLERANCE [None]
  - FEBRILE NEUTROPENIA [None]
  - LUNG INFILTRATION [None]
  - OXYGEN SATURATION DECREASED [None]
  - PYREXIA [None]
  - RETINOIC ACID SYNDROME [None]
  - TACHYPNOEA [None]
  - VOMITING [None]
